FAERS Safety Report 4852769-X (Version None)
Quarter: 2005Q4

REPORT INFORMATION
  Report Type: 
  Country: None (occurrence: None)
  Receive Date: 20051125
  Receipt Date: 20050912
  Transmission Date: 20060501
  Serious: Yes (Other)
  Sender: FDA-Public Use
  Company Number: HQWYE511316SEP05

PATIENT
  Age: 53 Year
  Sex: Female
  Weight: 79 kg

DRUGS (12)
  1. ZOSYN [Suspect]
     Indication: MASTOIDITIS
     Dosage: 3.375 GRAMS EVERY 6 HOURS, INTRAVENOUS
     Route: 042
     Dates: start: 20050830, end: 20050907
  2. VITAMIN B12 (CYANOCOBALAMIN AND DERIVATIVES) (VITAMIN B12 (CYANOCOBALA [Concomitant]
  3. VITAMINE C (ASCORBIC ACID) [Concomitant]
  4. FOLIC ACID [Concomitant]
  5. KLONOPIN [Concomitant]
  6. PREVACID [Concomitant]
  7. PROZAC [Concomitant]
  8. MULTIVITAMINS, PLAIN (MULTIVITAMINS, PLAIN) [Concomitant]
  9. MAGNESIUM (MAGNESIUM) [Concomitant]
  10. VICODIN [Concomitant]
  11. ALPRAZOLAM [Concomitant]
  12. ZANAFLEX [Concomitant]

REACTIONS (3)
  - FORMICATION [None]
  - IDIOSYNCRATIC DRUG REACTION [None]
  - PARAESTHESIA [None]
